FAERS Safety Report 9474820 (Version 1)
Quarter: 2013Q3

REPORT INFORMATION
  Report Type: Spontaneous
  Country: CH (occurrence: CH)
  Receive Date: 20130823
  Receipt Date: 20130823
  Transmission Date: 20140515
  Serious: Yes (Hospitalization)
  Sender: FDA-Public Use
  Company Number: PHHY2013CH089161

PATIENT
  Age: 49 Year
  Sex: Female
  Weight: 95 kg

DRUGS (5)
  1. CLOPIN ECO [Suspect]
     Indication: SCHIZOPHRENIA, DISORGANISED TYPE
     Dosage: 75 MG, QD
     Route: 048
     Dates: start: 20130516
  2. DEPO-PROVERA [Interacting]
     Indication: CONTRACEPTION
     Dosage: 150 MG, Q3MO
     Route: 030
  3. DEPAKINE [Concomitant]
     Dosage: 1500 MG, QD
     Route: 048
     Dates: start: 2003
  4. DEPAKINE [Concomitant]
     Dosage: 500 MG, QD
     Route: 048
     Dates: start: 20130516, end: 20130522
  5. TEMESTA [Concomitant]
     Dosage: 2.5 MG, TID
     Route: 048

REACTIONS (5)
  - Respiratory failure [Recovering/Resolving]
  - Pulmonary embolism [Recovering/Resolving]
  - Thrombophlebitis [Recovering/Resolving]
  - Pain in extremity [Recovering/Resolving]
  - Drug interaction [Recovering/Resolving]
